FAERS Safety Report 9414906 (Version 1)
Quarter: 2013Q3

REPORT INFORMATION
  Report Type: Report from Study
  Country: US (occurrence: US)
  Receive Date: 20130723
  Receipt Date: 20130723
  Transmission Date: 20140515
  Serious: Yes (Other)
  Sender: FDA-Public Use
  Company Number: US-SANOFI-AVENTIS-2013SA059918

PATIENT
  Age: 54 Year
  Sex: Female
  Weight: 64.41 kg

DRUGS (5)
  1. AUBAGIO [Suspect]
     Indication: MULTIPLE SCLEROSIS
     Route: 048
     Dates: start: 20130101, end: 20130708
  2. EFFEXOR-XR [Concomitant]
     Indication: ANXIETY
     Route: 065
     Dates: start: 2005
  3. NUVIGIL [Concomitant]
     Indication: ASTHENIA
     Route: 065
     Dates: start: 2011
  4. CALCIUM [Concomitant]
     Route: 065
     Dates: start: 1985
  5. MULTIVITAMINS [Concomitant]
     Route: 065
     Dates: start: 1985

REACTIONS (5)
  - Abdominal discomfort [Not Recovered/Not Resolved]
  - Decreased appetite [Not Recovered/Not Resolved]
  - Diarrhoea [Not Recovered/Not Resolved]
  - Faecal incontinence [Not Recovered/Not Resolved]
  - Weight decreased [Not Recovered/Not Resolved]
